FAERS Safety Report 8023673-3 (Version None)
Quarter: 2012Q1

REPORT INFORMATION
  Report Type: 
  Country: None (occurrence: None)
  Receive Date: 20120104
  Receipt Date: 20120104
  Transmission Date: 20120608
  Serious: No
  Sender: FDA-Public Use
  Company Number: None

PATIENT
  Sex: Female
  Weight: 58.2 kg

DRUGS (2)
  1. VENLAFAXINE [Suspect]
     Indication: DEPRESSION
     Dosage: 75MG 1 CAPSULE DAILY 047
     Dates: start: 20111215, end: 20120103
  2. VENLAFAXINE [Suspect]
     Indication: ANXIETY
     Dosage: 75MG 1 CAPSULE DAILY 047
     Dates: start: 20111215, end: 20120103

REACTIONS (5)
  - HEADACHE [None]
  - ANXIETY [None]
  - PRODUCT SUBSTITUTION ISSUE [None]
  - QUALITY OF LIFE DECREASED [None]
  - MYALGIA [None]
